FAERS Safety Report 12298972 (Version 4)
Quarter: 2016Q2

REPORT INFORMATION
  Report Type: Spontaneous
  Country: IT (occurrence: IT)
  Receive Date: 20160425
  Receipt Date: 20160603
  Transmission Date: 20160815
  Serious: Yes (Other)
  Sender: FDA-Public Use
  Company Number: IT-ACCORD-039813

PATIENT
  Age: 55 Year
  Sex: Female
  Weight: 66 kg

DRUGS (2)
  1. PACLITAXEL ACCORD [Suspect]
     Active Substance: PACLITAXEL
     Indication: BREAST CANCER
     Dosage: PROBABLE BATCH: PS02175; EXP DATE: JUN-2017, S14911; EXP DATE: OCT-2017, DH50644; EXP DATE: APR-2017
     Route: 042
     Dates: start: 20160216
  2. TIROSINT [Concomitant]
     Active Substance: LEVOTHYROXINE SODIUM

REACTIONS (9)
  - Asthenia [Recovering/Resolving]
  - Feeling hot [Unknown]
  - Myalgia [Recovering/Resolving]
  - Thrombocytopenia [Unknown]
  - Infusion related reaction [Recovering/Resolving]
  - Throat tightness [Recovering/Resolving]
  - Neutropenia [Recovering/Resolving]
  - Arthralgia [Recovering/Resolving]
  - Rash erythematous [Recovering/Resolving]

NARRATIVE: CASE EVENT DATE: 20160216
